FAERS Safety Report 6704367-0 (Version None)
Quarter: 2010Q2

REPORT INFORMATION
  Report Type: 
  Country: None (occurrence: None)
  Receive Date: 20100430
  Receipt Date: 20100427
  Transmission Date: 20101027
  Serious: Yes (Hospitalization, Disabling, Other)
  Sender: FDA-Public Use
  Company Number: US-MERCK-0903USA03155

PATIENT
  Age: 50 Year
  Sex: Female

DRUGS (2)
  1. FOSAMAX [Suspect]
     Indication: OSTEOPOROSIS
     Route: 048
     Dates: start: 20010401, end: 20061201
  2. LEVALBUTEROL [Concomitant]
     Indication: ASTHMA
     Route: 055
     Dates: start: 19790101

REACTIONS (15)
  - ABSCESS [None]
  - ADVERSE EVENT [None]
  - DENTAL CARIES [None]
  - EXOSTOSIS [None]
  - FALL [None]
  - GINGIVAL BLEEDING [None]
  - IMPAIRED HEALING [None]
  - JOINT INJURY [None]
  - MENOPAUSAL DEPRESSION [None]
  - MULTIPLE FRACTURES [None]
  - MUSCULAR WEAKNESS [None]
  - OSTEOMYELITIS [None]
  - OSTEONECROSIS [None]
  - TOOTH DISORDER [None]
  - WRIST FRACTURE [None]
